FAERS Safety Report 9981054 (Version 1)
Quarter: 2014Q1

REPORT INFORMATION
  Report Type: Spontaneous
  Country: GB (occurrence: None)
  Receive Date: 20140305
  Receipt Date: 20140305
  Transmission Date: 20141002
  Serious: Yes (Other)
  Sender: FDA-Public Use
  Company Number: AUR-APL-2014-012182

PATIENT
  Age: 12 Year
  Sex: Female
  Weight: 50 kg

DRUGS (3)
  1. LAMOTRIGINE (LAMOTRIGINE) [Suspect]
     Indication: EPILEPSY
     Dosage: 60 MG, 2 IN 1 D
     Route: 048
  2. MIDAZOLAM (MIDAZOLAM) [Suspect]
     Indication: EPILEPSY
     Route: 048
  3. SODIUM VALPROATE (VALPROATE SODIUM) [Suspect]
     Indication: EPILEPSY
     Dosage: 9 ML, 2 IN 1 D
     Route: 048

REACTIONS (1)
  - Rash erythematous [None]
